FAERS Safety Report 20165306 (Version 1)
Quarter: 2021Q4

REPORT INFORMATION
  Report Type: Spontaneous
  Country: US (occurrence: US)
  Receive Date: 20211209
  Receipt Date: 20211209
  Transmission Date: 20220303
  Serious: Yes (Death, Other)
  Sender: FDA-Public Use
  Company Number: US-PFIZER INC-2010000639

PATIENT
  Age: 27 Year
  Sex: Male

DRUGS (6)
  1. IBUPROFEN [Suspect]
     Active Substance: IBUPROFEN
     Indication: Suicide attempt
     Dosage: UNK
     Route: 048
     Dates: start: 2008, end: 2008
  2. BUPROPION [Suspect]
     Active Substance: BUPROPION
     Indication: Suicide attempt
     Dosage: UNK
     Route: 048
     Dates: start: 2008, end: 2008
  3. COMPAZINE [Suspect]
     Active Substance: PROCHLORPERAZINE MALEATE
     Indication: Suicide attempt
     Dosage: UNK
     Route: 048
     Dates: start: 2008, end: 2008
  4. OLANZAPINE [Suspect]
     Active Substance: OLANZAPINE
     Indication: Suicide attempt
     Dosage: UNK
     Route: 048
     Dates: start: 2008, end: 2008
  5. CLONAZEPAM [Suspect]
     Active Substance: CLONAZEPAM
     Indication: Suicide attempt
     Dosage: UNK
     Route: 048
     Dates: start: 2008, end: 2008
  6. ACETAMINOPHEN\HYDROCODONE BITARTRATE [Suspect]
     Active Substance: ACETAMINOPHEN\HYDROCODONE BITARTRATE
     Indication: Suicide attempt
     Dosage: UNK
     Route: 048
     Dates: start: 2008, end: 2008

REACTIONS (2)
  - Toxicity to various agents [Fatal]
  - Completed suicide [Fatal]

NARRATIVE: CASE EVENT DATE: 20080101
